FAERS Safety Report 15820459 (Version 1)
Quarter: 2019Q1

REPORT INFORMATION
  Report Type: Spontaneous
  Country: US (occurrence: US)
  Receive Date: 20190111
  Receipt Date: 20190111
  Transmission Date: 20190417
  Serious: Yes (Life-Threatening, Disabling)
  Sender: FDA-Public Use
  Company Number: None

PATIENT
  Age: 62 Year
  Sex: Female
  Weight: 66.6 kg

DRUGS (1)
  1. LEVOFLOXACIN. [Suspect]
     Active Substance: LEVOFLOXACIN
     Indication: SKIN IRRITATION
     Dates: start: 20170804, end: 20170806

REACTIONS (12)
  - Muscle disorder [None]
  - Urinary incontinence [None]
  - Therapy non-responder [None]
  - Hallucination [None]
  - Cortisol increased [None]
  - Myalgia [None]
  - Insomnia [None]
  - Memory impairment [None]
  - Product complaint [None]
  - Cognitive disorder [None]
  - Fatigue [None]
  - Rotator cuff syndrome [None]

NARRATIVE: CASE EVENT DATE: 20170804
